FAERS Safety Report 4579860-X (Version None)
Quarter: 2005Q1

REPORT INFORMATION
  Report Type: 
  Country: None (occurrence: None)
  Receive Date: 20050214
  Receipt Date: 20050202
  Transmission Date: 20050727
  Serious: Yes (Hospitalization)
  Sender: FDA-Public Use
  Company Number: 200510412FR

PATIENT
  Age: 57 Year
  Sex: Female

DRUGS (2)
  1. LASILIX 40 MG [Suspect]
     Indication: ESSENTIAL HYPERTENSION
     Route: 048
     Dates: start: 20040331
  2. ALDACTONE [Suspect]
     Route: 048
     Dates: start: 20040331

REACTIONS (2)
  - HYPERKALAEMIA [None]
  - HYPONATRAEMIA [None]
